FAERS Safety Report 7724047-2 (Version None)
Quarter: 2011Q3

REPORT INFORMATION
  Report Type: 
  Country: None (occurrence: None)
  Receive Date: 20110901
  Receipt Date: 20110825
  Transmission Date: 20111222
  Serious: Yes (Hospitalization)
  Sender: FDA-Public Use
  Company Number: JP-BAYER-200811912BYL

PATIENT
  Age: 69 Year
  Sex: Male
  Weight: 96 kg

DRUGS (1)
  1. NEXAVAR [Suspect]
     Indication: RENAL CELL CARCINOMA
     Route: 048
     Dates: start: 20080418, end: 20080813

REACTIONS (1)
  - BLOOD GLUCOSE INCREASED [None]
